FAERS Safety Report 4999357-2 (Version None)
Quarter: 2006Q2

REPORT INFORMATION
  Report Type: 
  Country: None (occurrence: None)
  Receive Date: 20060511
  Receipt Date: 20060420
  Transmission Date: 20061013
  Serious: Yes (Hospitalization)
  Sender: FDA-Public Use
  Company Number: GB-BRISTOL-MYERS SQUIBB COMPANY-13357769

PATIENT
  Age: 56 Year
  Sex: Male

DRUGS (1)
  1. ORENCIA [Suspect]
     Route: 042
     Dates: start: 20050715, end: 20050715

REACTIONS (2)
  - OSTEOMYELITIS [None]
  - OSTEOMYELITIS ACUTE [None]
